FAERS Safety Report 5230204-X (Version None)
Quarter: 2007Q1

REPORT INFORMATION
  Report Type: 
  Country: None (occurrence: None)
  Receive Date: 20070206
  Receipt Date: 20061002
  Transmission Date: 20070707
  Serious: No
  Sender: FDA-Public Use
  Company Number: US-GLAXOSMITHKLINE-A0622136A

PATIENT
  Age: 60 Year
  Sex: Male

DRUGS (6)
  1. PAXIL CR [Suspect]
     Indication: DEPRESSION
     Dosage: 37.5MG PER DAY
     Route: 048
     Dates: start: 20050701
  2. WELLBUTRIN XL [Concomitant]
  3. LIPITOR [Concomitant]
  4. NIASPAN [Concomitant]
  5. ASPIRIN [Concomitant]
  6. FISH OILS [Concomitant]

REACTIONS (3)
  - DRUG INEFFECTIVE [None]
  - SLUGGISHNESS [None]
  - TREMOR [None]
